FAERS Safety Report 4549433-3 (Version None)
Quarter: 2005Q1

REPORT INFORMATION
  Report Type: 
  Country: None (occurrence: None)
  Receive Date: 20050106
  Receipt Date: 20041220
  Transmission Date: 20050727
  Serious: Yes (Hospitalization)
  Sender: FDA-Public Use
  Company Number: FR_040604297

PATIENT
  Age: 60 Year
  Sex: Female
  Weight: 70 kg

DRUGS (1)
  1. EVISTA [Suspect]
     Indication: OSTEOPOROSIS
     Dosage: 60 MG/1 DAY
     Dates: start: 20030312, end: 20040517

REACTIONS (6)
  - CONVULSION [None]
  - DIFFICULTY IN WALKING [None]
  - DYSARTHRIA [None]
  - HEAD INJURY [None]
  - HEMIPARESIS [None]
  - MENINGIOMA [None]
